FAERS Safety Report 22053498 (Version 1)
Quarter: 2023Q1

REPORT INFORMATION
  Report Type: Spontaneous
  Country: CA (occurrence: CA)
  Receive Date: 20230302
  Receipt Date: 20230302
  Transmission Date: 20230417
  Serious: Yes (Hospitalization, Other)
  Sender: FDA-Public Use
  Company Number: CA-HALEON-CACH2023AMR009234

PATIENT

DRUGS (5)
  1. ADVIL [Suspect]
     Active Substance: IBUPROFEN
     Indication: Pain
     Dosage: 400 MG, QID
     Route: 048
  2. CALCIUM [Concomitant]
     Active Substance: CALCIUM
     Indication: Product used for unknown indication
     Dosage: UNK
  3. LANSOPRAZOLE [Concomitant]
     Active Substance: LANSOPRAZOLE
     Indication: Product used for unknown indication
     Dosage: UNK
  4. SERTRALINE [Concomitant]
     Active Substance: SERTRALINE HYDROCHLORIDE
     Indication: Product used for unknown indication
     Dosage: UNK
  5. VITAMIN D3 [Concomitant]
     Active Substance: CHOLECALCIFEROL
     Indication: Product used for unknown indication
     Dosage: UNK

REACTIONS (4)
  - Haematemesis [Recovered/Resolved]
  - Haemorrhagic erosive gastritis [Recovered/Resolved]
  - Melaena [Recovered/Resolved]
  - Upper gastrointestinal haemorrhage [Recovered/Resolved]
